FAERS Safety Report 11510217 (Version 1)
Quarter: 2015Q3

REPORT INFORMATION
  Report Type: Spontaneous
  Country: US (occurrence: US)
  Receive Date: 20150915
  Receipt Date: 20150915
  Transmission Date: 20151125
  Serious: No
  Sender: FDA-Public Use
  Company Number: US-JNJFOC-20150115972

PATIENT
  Age: 44 Year
  Sex: Male
  Weight: 99.79 kg

DRUGS (2)
  1. VISINE L.R. [Suspect]
     Active Substance: OXYMETAZOLINE HYDROCHLORIDE
     Route: 055
  2. VISINE L.R. [Suspect]
     Active Substance: OXYMETAZOLINE HYDROCHLORIDE
     Indication: ACCIDENTAL EXPOSURE TO PRODUCT
     Dosage: 1 SPRAY PER NOSTRIL
     Route: 055
     Dates: start: 20150120

REACTIONS (1)
  - Accidental exposure to product [Unknown]
